FAERS Safety Report 24907495 (Version 1)
Quarter: 2025Q1

REPORT INFORMATION
  Report Type: Spontaneous
  Country: SA (occurrence: SA)
  Receive Date: 20250130
  Receipt Date: 20250130
  Transmission Date: 20250408
  Serious: Yes (Other)
  Sender: STRIDES
  Company Number: SA-STRIDES ARCOLAB LIMITED-2025SP001349

PATIENT
  Age: 20 Year
  Sex: Male
  Weight: 68 kg

DRUGS (4)
  1. PREDNISOLONE [Suspect]
     Active Substance: PREDNISOLONE
     Indication: Prophylaxis against transplant rejection
     Route: 065
  2. TACROLIMUS [Suspect]
     Active Substance: TACROLIMUS
     Indication: Prophylaxis against transplant rejection
     Route: 065
  3. APIXABAN [Concomitant]
     Active Substance: APIXABAN
     Indication: Subclavian vein thrombosis
     Route: 065
  4. INSULIN NOS [Concomitant]
     Active Substance: INSULIN NOS
     Indication: Type 1 diabetes mellitus
     Route: 065

REACTIONS (7)
  - Obesity [Recovered/Resolved]
  - Hyperinsulinaemia [Unknown]
  - Insulin C-peptide increased [Unknown]
  - Pancreatic disorder [Unknown]
  - Type 2 diabetes mellitus [Unknown]
  - Polyomavirus-associated nephropathy [Unknown]
  - Sepsis [Unknown]
